FAERS Safety Report 4380199-6 (Version None)
Quarter: 2004Q2

REPORT INFORMATION
  Report Type: 
  Country: None (occurrence: None)
  Receive Date: 20040601
  Receipt Date: 20040220
  Transmission Date: 20050107
  Serious: No
  Sender: FDA-Public Use
  Company Number: WAES0312USA00565

PATIENT
  Age: 77 Year
  Sex: Female
  Weight: 85.7298 kg

DRUGS (6)
  1. ZETIA [Suspect]
     Indication: BLOOD CHOLESTEROL INCREASED
     Dosage: 10 MG/DAILY/PO
     Route: 048
     Dates: start: 20030624, end: 20031113
  2. DIOVAN [Concomitant]
  3. PLETAL [Concomitant]
  4. TIAZAC [Concomitant]
  5. ASPIRIN [Concomitant]
  6. NIACIN [Concomitant]

REACTIONS (2)
  - FATIGUE [None]
  - MYOPATHY [None]
